FAERS Safety Report 5962052-7 (Version None)
Quarter: 2008Q4

REPORT INFORMATION
  Report Type: 
  Country: None (occurrence: None)
  Receive Date: 20081121
  Receipt Date: 20081111
  Transmission Date: 20090506
  Serious: Yes (Other)
  Sender: FDA-Public Use
  Company Number: PHHY2008JP28377

PATIENT
  Age: 62 Year
  Sex: Female

DRUGS (1)
  1. FAMCICLOVIR [Suspect]
     Dosage: 1500 MG/ DAY
     Route: 048
     Dates: start: 20080811, end: 20080818

REACTIONS (4)
  - DIZZINESS [None]
  - HEPATIC FUNCTION ABNORMAL [None]
  - PAIN [None]
  - VOMITING [None]
